FAERS Safety Report 11795722 (Version 1)
Quarter: 2015Q4

REPORT INFORMATION
  Report Type: Spontaneous
  Country: US (occurrence: US)
  Receive Date: 20151202
  Receipt Date: 20151202
  Transmission Date: 20160305
  Serious: No
  Sender: FDA-Public Use
  Company Number: ALCN2015US000507

PATIENT
  Sex: Female
  Weight: 58.96 kg

DRUGS (2)
  1. DORZOLAMIDE [Suspect]
     Active Substance: DORZOLAMIDE
     Indication: GLAUCOMA
     Dosage: 1 GTT, QD
     Route: 047
  2. SIMVASTATIN. [Concomitant]
     Active Substance: SIMVASTATIN
     Indication: HYPERCHOLESTEROLAEMIA
     Dosage: 1 GTT, QD
     Route: 048

REACTIONS (11)
  - Palpitations [Recovered/Resolved]
  - Headache [Recovered/Resolved]
  - Spider vein [Recovered/Resolved]
  - Angiopathy [Recovered/Resolved]
  - Erythema [Recovered/Resolved]
  - Hot flush [Recovered/Resolved]
  - Paraesthesia [Recovered/Resolved]
  - Blepharospasm [Recovered/Resolved]
  - Tenderness [Recovered/Resolved]
  - Peripheral swelling [Recovered/Resolved]
  - Rash erythematous [Recovered/Resolved]
